FAERS Safety Report 24690520 (Version 2)
Quarter: 2025Q2

REPORT INFORMATION
  Report Type: Spontaneous
  Country: US (occurrence: US)
  Receive Date: 20241203
  Receipt Date: 20250510
  Transmission Date: 20250717
  Serious: Yes (Other)
  Sender: SANOFI AVENTIS
  Company Number: US-SA-2024SA351159

PATIENT
  Age: 74 Year
  Sex: Female

DRUGS (34)
  1. REZUROCK [Suspect]
     Active Substance: BELUMOSUDIL
     Dosage: 200 MG, BID
     Route: 048
     Dates: start: 202209, end: 2024
  2. SPIRIVA [Concomitant]
     Active Substance: TIOTROPIUM BROMIDE MONOHYDRATE
  3. AMITRIPTYLINE [Concomitant]
     Active Substance: AMITRIPTYLINE
  4. HYDROXYZINE [Concomitant]
     Active Substance: HYDROXYZINE HYDROCHLORIDE
  5. GABAPENTIN [Concomitant]
     Active Substance: GABAPENTIN
  6. ACYCLOVIR [Concomitant]
     Active Substance: ACYCLOVIR
  7. TRAMADOL [Concomitant]
     Active Substance: TRAMADOL
  8. VITAMIN D3 [Concomitant]
     Active Substance: CHOLECALCIFEROL
  9. IMBRUVICA [Concomitant]
     Active Substance: IBRUTINIB
  10. LISINOPRIL [Concomitant]
     Active Substance: LISINOPRIL
  11. ZOFRAN [Concomitant]
     Active Substance: ONDANSETRON HYDROCHLORIDE
  12. PROCHLORPERAZINE [Concomitant]
     Active Substance: PROCHLORPERAZINE
  13. ORENCIA [Concomitant]
     Active Substance: ABATACEPT
  14. FAMOTIDINE [Concomitant]
     Active Substance: FAMOTIDINE
  15. FOLIC ACID [Concomitant]
     Active Substance: FOLIC ACID
  16. MONTELUKAST [Concomitant]
     Active Substance: MONTELUKAST
  17. VORICONAZOLE [Concomitant]
     Active Substance: VORICONAZOLE
  18. CLOBETASOL PROPIONATE [Concomitant]
     Active Substance: CLOBETASOL PROPIONATE
  19. LOPERAMIDE [Concomitant]
     Active Substance: LOPERAMIDE
  20. PENTAMIDINE [Concomitant]
     Active Substance: PENTAMIDINE
  21. JAKAFI [Concomitant]
     Active Substance: RUXOLITINIB
  22. URSODIOL [Concomitant]
     Active Substance: URSODIOL
  23. ADVAIR HFA [Concomitant]
     Active Substance: FLUTICASONE PROPIONATE\SALMETEROL XINAFOATE
  24. SIMULECT [Concomitant]
     Active Substance: BASILIXIMAB
  25. VOLTAREN [Concomitant]
     Active Substance: DICLOFENAC SODIUM
  26. ERYTHROCIN STEARATE [Concomitant]
     Active Substance: ERYTHROMYCIN STEARATE
     Route: 048
  27. TACROLIMUS [Concomitant]
     Active Substance: TACROLIMUS
  28. CARVEDILOL [Concomitant]
     Active Substance: CARVEDILOL
  29. OMEPRAZOLE [Concomitant]
     Active Substance: OMEPRAZOLE
  30. METFORMIN [Concomitant]
     Active Substance: METFORMIN HYDROCHLORIDE
  31. MAGNESIUM [Concomitant]
     Active Substance: MAGNESIUM
  32. ESCITALOPRAM OXALATE [Concomitant]
     Active Substance: ESCITALOPRAM OXALATE
  33. PRAVASTATIN [Concomitant]
     Active Substance: PRAVASTATIN
  34. ASPIRIN [Concomitant]
     Active Substance: ASPIRIN

REACTIONS (4)
  - Pneumonia [Recovered/Resolved]
  - Blood pressure abnormal [Unknown]
  - COVID-19 [Recovered/Resolved]
  - Inappropriate schedule of product administration [Unknown]

NARRATIVE: CASE EVENT DATE: 20241001
